FAERS Safety Report 14874641 (Version 2)
Quarter: 2018Q2

REPORT INFORMATION
  Report Type: Report from Study
  Country: FR (occurrence: FR)
  Receive Date: 20180510
  Receipt Date: 20180531
  Transmission Date: 20180711
  Serious: Yes (Death)
  Sender: FDA-Public Use
  Company Number: FR-PFIZER INC-2018187680

PATIENT

DRUGS (9)
  1. LOMUSTINE. [Suspect]
     Active Substance: LOMUSTINE
     Indication: ACUTE MYELOID LEUKAEMIA
     Dosage: 200 MG/M2, CYCLIC, INDUCTION AT DAY 1
     Route: 048
  2. CYTARABINE. [Concomitant]
     Active Substance: CYTARABINE
     Dosage: 50 MG/M2, CYCLIC, CONSOLIDATION, X2 D1-5
     Route: 058
  3. LOMUSTINE. [Suspect]
     Active Substance: LOMUSTINE
     Dosage: 50 MG, CYCLIC, REINDUCTIONS AT DAY 1
     Route: 048
  4. IDARUBICIN HCL [Concomitant]
     Active Substance: IDARUBICIN HYDROCHLORIDE
     Indication: ACUTE MYELOID LEUKAEMIA
     Dosage: 8 MG/M2, CYCLIC, INDUCTION D 1-5
  5. IDARUBICIN HCL [Concomitant]
     Active Substance: IDARUBICIN HYDROCHLORIDE
     Dosage: 8 MG/M2, CYCLIC, REINDUCTIONS DAY 1
     Route: 042
  6. LOMUSTINE. [Suspect]
     Active Substance: LOMUSTINE
     Dosage: 80 MG, CYCLIC, CONSOLIDATION AT DAY 1
     Route: 048
  7. IDARUBICIN HCL [Concomitant]
     Active Substance: IDARUBICIN HYDROCHLORIDE
     Dosage: 8 MG/M2, CYCLIC, CONSOLIDATION D 1-3
  8. CYTARABINE. [Concomitant]
     Active Substance: CYTARABINE
     Dosage: 50 MG/M2, CYCLIC, REINDUCTIONS, PER 12H D1-5
     Route: 058
  9. CYTARABINE. [Concomitant]
     Active Substance: CYTARABINE
     Indication: ACUTE MYELOID LEUKAEMIA
     Dosage: 100 MG/M2, CYCLIC, INDUCTION D 1-7

REACTIONS (1)
  - Septic shock [Fatal]
